FAERS Safety Report 5178228-5 (Version None)
Quarter: 2006Q4

REPORT INFORMATION
  Report Type: 
  Country: None (occurrence: None)
  Receive Date: 20061208
  Receipt Date: 20061123
  Transmission Date: 20070319
  Serious: Yes (Other)
  Sender: FDA-Public Use
  Company Number: 2006SP007061

PATIENT
  Age: 2 Year
  Sex: Female
  Weight: 14.1 kg

DRUGS (3)
  1. MOMETASON ESSEX (MOMETASONE FUROATE) [Suspect]
     Indication: DERMATITIS ATOPIC
     Dosage: 0.1 PCT; UNKNOWN;TOP
     Route: 061
  2. BETAMETHASONE [Suspect]
     Indication: BRONCHITIS
     Dosage: 1 MG/KG; QD; PO
     Route: 048
  3. BECLOMETHASONE DIPROPIONATE [Suspect]
     Indication: BRONCHITIS
     Dosage: 800 UNK; UNKNOWN

REACTIONS (4)
  - DRUG HYPERSENSITIVITY [None]
  - MUSCLE FIBROSIS [None]
  - MYOPATHY [None]
  - OSTEONECROSIS [None]
